FAERS Safety Report 16725672 (Version 1)
Quarter: 2019Q3

REPORT INFORMATION
  Report Type: Spontaneous
  Country: US (occurrence: US)
  Receive Date: 20190705
  Receipt Date: 20190705
  Transmission Date: 20191005
  Serious: No
  Sender: FDA-Public Use
  Company Number: None

PATIENT
  Age: 35 Year
  Sex: Female

DRUGS (1)
  1. ENBREL [Suspect]
     Active Substance: ETANERCEPT
     Indication: RHEUMATOID ARTHRITIS
     Route: 058
     Dates: start: 20160901

REACTIONS (3)
  - Hepatic enzyme abnormal [None]
  - Polycystic liver disease [None]
  - Alpha-1 anti-trypsin deficiency [None]

NARRATIVE: CASE EVENT DATE: 20190624
